FAERS Safety Report 6816536-X (Version None)
Quarter: 2010Q3

REPORT INFORMATION
  Report Type: 
  Country: None (occurrence: None)
  Receive Date: 20100706
  Receipt Date: 20100622
  Transmission Date: 20110219
  Serious: Yes (Disabling)
  Sender: FDA-Public Use
  Company Number: PHHY2010PH38108

PATIENT
  Age: 63 Year
  Sex: Male

DRUGS (4)
  1. EXJADE [Suspect]
     Dosage: 500 MG/DAY
     Route: 048
  2. EXJADE [Suspect]
     Dosage: 125 MG, DAILY
  3. INSULIN [Concomitant]
     Indication: DIABETES MELLITUS
  4. MULTI-VITAMINS [Concomitant]

REACTIONS (2)
  - HYPOACUSIS [None]
  - TINNITUS [None]
